FAERS Safety Report 10029607 (Version 1)
Quarter: 2014Q1

REPORT INFORMATION
  Report Type: Spontaneous
  Country: US (occurrence: None)
  Receive Date: 20140320
  Receipt Date: 20140320
  Transmission Date: 20141002
  Serious: Yes (Hospitalization)
  Sender: FDA-Public Use
  Company Number: None

PATIENT
  Age: 77 Year
  Sex: Male
  Weight: 60.6 kg

DRUGS (1)
  1. BLEOMYCIN [Suspect]
     Dosage: 18.9 UNITS  OTHER  IV
     Route: 042
     Dates: start: 20130620, end: 20130816

REACTIONS (5)
  - Toxicity to various agents [None]
  - Fatigue [None]
  - Decreased appetite [None]
  - Pyrexia [None]
  - Respiratory failure [None]
